FAERS Safety Report 6880271-2 (Version None)
Quarter: 2010Q3

REPORT INFORMATION
  Report Type: 
  Country: None (occurrence: None)
  Receive Date: 20100728
  Receipt Date: 20100721
  Transmission Date: 20110219
  Serious: Yes (Hospitalization, Other)
  Sender: FDA-Public Use
  Company Number: CA-AMGEN-KDL423858

PATIENT
  Sex: Female
  Weight: 57.7 kg

DRUGS (8)
  1. ENBREL [Suspect]
     Indication: RHEUMATOID ARTHRITIS
     Dates: start: 20091201, end: 20100518
  2. METHOTREXATE [Concomitant]
  3. PLAQUENIL [Concomitant]
  4. CALCIUM [Concomitant]
  5. SYNTHROID [Concomitant]
     Dates: start: 20091001
  6. PANTOPRAZOLE [Concomitant]
  7. FOLIC ACID [Concomitant]
  8. ACTONEL [Concomitant]

REACTIONS (5)
  - HERPES ZOSTER [None]
  - MONOPLEGIA [None]
  - PAIN IN EXTREMITY [None]
  - PERIPHERAL SENSORIMOTOR NEUROPATHY [None]
  - WALKING AID USER [None]
